FAERS Safety Report 4750709-5 (Version None)
Quarter: 2005Q3

REPORT INFORMATION
  Report Type: 
  Country: None (occurrence: None)
  Receive Date: 20050822
  Receipt Date: 20050802
  Transmission Date: 20060218
  Serious: Yes (Other)
  Sender: FDA-Public Use
  Company Number: 2005US000910

PATIENT
  Age: 47 Year
  Sex: Female

DRUGS (2)
  1. PROTOPIC [Suspect]
     Indication: ECZEMA
     Dates: start: 20010401, end: 20050516
  2. TOPICAL STEROIDS [Concomitant]

REACTIONS (3)
  - BREAST CANCER FEMALE [None]
  - DRUG EFFECT DECREASED [None]
  - NON-HODGKIN'S LYMPHOMA [None]
